FAERS Safety Report 26007110 (Version 2)
Quarter: 2025Q4

REPORT INFORMATION
  Report Type: Report from Study
  Country: CN (occurrence: CN)
  Receive Date: 20251106
  Receipt Date: 20251112
  Transmission Date: 20260118
  Serious: Yes (Other)
  Sender: NOVARTIS
  Company Number: CN-002147023-NVSC2025CN171312

PATIENT

DRUGS (2)
  1. LEQVIO [Suspect]
     Active Substance: INCLISIRAN SODIUM
     Indication: Hyperlipidaemia
     Dosage: 1 DOSAGE FORM
     Route: 058
     Dates: start: 20250705, end: 20250705
  2. LEQVIO [Suspect]
     Active Substance: INCLISIRAN SODIUM
     Dosage: 1 DOSAGE FORM
     Route: 058
     Dates: start: 20251003, end: 20251003

REACTIONS (5)
  - Blood triglycerides increased [Unknown]
  - Injection site pain [Unknown]
  - Injection site erythema [Recovering/Resolving]
  - Injection site pruritus [Recovering/Resolving]
  - Low density lipoprotein decreased [Unknown]

NARRATIVE: CASE EVENT DATE: 20250101
